FAERS Safety Report 18791378 (Version 1)
Quarter: 2021Q1

REPORT INFORMATION
  Report Type: Spontaneous
  Country: US (occurrence: US)
  Receive Date: 20210126
  Receipt Date: 20210126
  Transmission Date: 20210419
  Serious: No
  Sender: FDA-Public Use
  Company Number: US-IGSA-BIG0012268

PATIENT
  Age: 48 Year
  Sex: Female

DRUGS (2)
  1. XEMBIFY [Suspect]
     Active Substance: HUMAN IMMUNOGLOBULIN G
     Dosage: UNK
  2. XEMBIFY [Suspect]
     Active Substance: HUMAN IMMUNOGLOBULIN G
     Indication: PRIMARY IMMUNODEFICIENCY SYNDROME
     Dosage: 48 GRAM, Q.2WK.
     Route: 058
     Dates: start: 202007

REACTIONS (1)
  - Fat necrosis [Recovered/Resolved]

NARRATIVE: CASE EVENT DATE: 202007
